FAERS Safety Report 7275217-1 (Version None)
Quarter: 2011Q1

REPORT INFORMATION
  Report Type: 
  Country: None (occurrence: None)
  Receive Date: 20110204
  Receipt Date: 20110125
  Transmission Date: 20110831
  Serious: Yes (Other)
  Sender: FDA-Public Use
  Company Number: PHHY2011CO06148

PATIENT
  Sex: Male

DRUGS (1)
  1. EXELON [Suspect]
     Indication: DEMENTIA ALZHEIMER'S TYPE
     Dosage: 4.6 MG/24 HOUR
     Route: 062
     Dates: start: 20110120

REACTIONS (4)
  - STUBBORNNESS [None]
  - DROWNING [None]
  - ANXIETY [None]
  - AGGRESSION [None]
